FAERS Safety Report 19845247 (Version 2)
Quarter: 2024Q4

REPORT INFORMATION
  Report Type: Spontaneous
  Country: US (occurrence: US)
  Receive Date: 20210917
  Receipt Date: 20241110
  Transmission Date: 20250115
  Serious: Yes (Hospitalization, Other)
  Sender: GLENMARK
  Company Number: US-MLMSERVICE-20210831-3080053-1

PATIENT

DRUGS (2)
  1. TACROLIMUS [Suspect]
     Active Substance: TACROLIMUS
     Indication: Immunosuppressant drug therapy
     Dosage: UNK
     Route: 065
     Dates: start: 2018
  2. MYCOPHENOLATE MOFETIL [Suspect]
     Active Substance: MYCOPHENOLATE MOFETIL
     Indication: Immunosuppressant drug therapy
     Dosage: UNK
     Route: 065
     Dates: start: 2018

REACTIONS (8)
  - Transplant dysfunction [Unknown]
  - Transplant dysfunction [Unknown]
  - Toxicity to various agents [Unknown]
  - Hydronephrosis [Unknown]
  - Kaposi^s sarcoma [Unknown]
  - Drug level increased [Unknown]
  - Acute kidney injury [Unknown]
  - Human herpesvirus 8 infection [Unknown]
